FAERS Safety Report 15271128 (Version 1)
Quarter: 2018Q4

REPORT INFORMATION
  Report Type: Spontaneous
  Country: CR (occurrence: CR)
  Receive Date: 20180813
  Receipt Date: 20180813
  Transmission Date: 20190204
  Serious: Yes (Other)
  Sender: FDA-Public Use
  Company Number: CR-BAYER-2018-147888

PATIENT
  Age: 46 Year
  Sex: Female

DRUGS (2)
  1. TIBOLONE [Concomitant]
     Active Substance: TIBOLONE
  2. CARDIOASPIRINA [Suspect]
     Active Substance: ASPIRIN

REACTIONS (1)
  - Hysterectomy [None]
